FAERS Safety Report 4408703-X (Version None)
Quarter: 2004Q3

REPORT INFORMATION
  Report Type: 
  Country: None (occurrence: None)
  Receive Date: 20040727
  Receipt Date: 20011025
  Transmission Date: 20050211
  Serious: Yes (Hospitalization, Disabling)
  Sender: FDA-Public Use
  Company Number: US-MERCK-01104508

PATIENT
  Age: 49 Year
  Sex: Male
  Weight: 86 kg

DRUGS (3)
  1. VIOXX [Suspect]
     Indication: BACK DISORDER
     Route: 048
     Dates: start: 20010101
  2. VIOXX [Suspect]
     Indication: MUSCULOSKELETAL DISORDER
     Route: 048
     Dates: start: 20010101
  3. ZOCOR [Concomitant]
     Route: 065

REACTIONS (43)
  - ABDOMINAL DISTENSION [None]
  - ACCIDENTAL OVERDOSE [None]
  - ANXIETY [None]
  - ARTHRALGIA [None]
  - ASTHENIA [None]
  - ATAXIA [None]
  - BACK INJURY [None]
  - BACK PAIN [None]
  - BLOOD GLUCOSE INCREASED [None]
  - BLOOD PRESSURE FLUCTUATION [None]
  - CARDIOVASCULAR DISORDER [None]
  - CLOSED HEAD INJURY [None]
  - CONCUSSION [None]
  - CONSTIPATION [None]
  - DEPRESSION [None]
  - DYSPHONIA [None]
  - DYSPNOEA [None]
  - EMOTIONAL DISTRESS [None]
  - FACIAL BONES FRACTURE [None]
  - HEAD INJURY [None]
  - HEADACHE [None]
  - HOARSENESS [None]
  - HYPERCHOLESTEROLAEMIA [None]
  - HYPERLIPIDAEMIA [None]
  - LACERATION [None]
  - LOSS OF CONSCIOUSNESS [None]
  - MUSCLE ATROPHY [None]
  - NASAL CONGESTION [None]
  - NASAL SEPTUM DEVIATION [None]
  - NASAL TURBINATE HYPERTROPHY [None]
  - NASOPHARYNGEAL DISORDER [None]
  - NECK PAIN [None]
  - NEUROPATHY PERIPHERAL [None]
  - NODULE [None]
  - NOSE DEFORMITY [None]
  - OBESITY [None]
  - OEDEMA [None]
  - PAIN [None]
  - POLYTRAUMATISM [None]
  - RENAL FAILURE [None]
  - SKIN LACERATION [None]
  - SLEEP APNOEA SYNDROME [None]
  - SOMNOLENCE [None]
